FAERS Safety Report 8379865-7 (Version None)
Quarter: 2012Q2

REPORT INFORMATION
  Report Type: 
  Country: None (occurrence: None)
  Receive Date: 20120523
  Receipt Date: 20120516
  Transmission Date: 20120825
  Serious: Yes (Hospitalization)
  Sender: FDA-Public Use
  Company Number: SE-PFIZER INC-2012118469

PATIENT
  Age: 34 Year
  Sex: Female

DRUGS (2)
  1. SYNAREL [Suspect]
     Dosage: 200 UG, UNK
     Route: 045
     Dates: start: 20090101, end: 20090101
  2. PUREGON [Suspect]
     Dosage: 0.8 ML (900IE/1.08ML)
     Route: 058
     Dates: start: 20090101, end: 20090101

REACTIONS (2)
  - VASCULAR DISSECTION [None]
  - CEREBRAL INFARCTION [None]
